FAERS Safety Report 13690673 (Version 1)
Quarter: 2017Q2

REPORT INFORMATION
  Report Type: Spontaneous
  Country: US (occurrence: US)
  Receive Date: 20170626
  Receipt Date: 20170626
  Transmission Date: 20170830
  Serious: Yes (Hospitalization)
  Sender: FDA-Public Use
  Company Number: US-GLAXOSMITHKLINE-US2017097180

PATIENT
  Sex: Male

DRUGS (16)
  1. FERROUS SULFATE. [Concomitant]
     Active Substance: FERROUS SULFATE
  2. RANITIDINE. [Concomitant]
     Active Substance: RANITIDINE
  3. CALCIUM [Concomitant]
     Active Substance: CALCIUM
  4. CARVEDILOL. [Concomitant]
     Active Substance: CARVEDILOL
  5. PROVENTIL [Concomitant]
     Active Substance: ALBUTEROL
  6. ADVAIR DISKUS [Suspect]
     Active Substance: FLUTICASONE PROPIONATE\SALMETEROL XINAFOATE
     Indication: CHRONIC OBSTRUCTIVE PULMONARY DISEASE
     Dosage: UNK
     Route: 055
     Dates: start: 20170526
  7. ISOSORBIDE MONONITRATE. [Concomitant]
     Active Substance: ISOSORBIDE MONONITRATE
  8. LUMIGAN [Concomitant]
     Active Substance: BIMATOPROST
  9. PLAVIX [Concomitant]
     Active Substance: CLOPIDOGREL BISULFATE
  10. SUCRALFATE. [Concomitant]
     Active Substance: SUCRALFATE
  11. FUROSEMIDE. [Concomitant]
     Active Substance: FUROSEMIDE
  12. VITAMIN D3 [Concomitant]
     Active Substance: CHOLECALCIFEROL
  13. ASPIRIN. [Concomitant]
     Active Substance: ASPIRIN
  14. ATORVASTATIN [Concomitant]
     Active Substance: ATORVASTATIN
  15. LISINOPRIL. [Concomitant]
     Active Substance: LISINOPRIL
  16. SPIRIVA [Concomitant]
     Active Substance: TIOTROPIUM BROMIDE MONOHYDRATE

REACTIONS (5)
  - Fall [Recovered/Resolved]
  - Laboratory test abnormal [Unknown]
  - Wrist fracture [Recovering/Resolving]
  - Dizziness [Recovered/Resolved]
  - Dyspnoea [Recovered/Resolved]
